FAERS Safety Report 8326860-X (Version None)
Quarter: 2012Q2

REPORT INFORMATION
  Report Type: 
  Country: None (occurrence: None)
  Receive Date: 20120501
  Receipt Date: 20110818
  Transmission Date: 20120825
  Serious: No
  Sender: FDA-Public Use
  Company Number: US-SANOFI-AVENTIS-2011SA056506

PATIENT

DRUGS (2)
  1. APIDRA [Suspect]
     Route: 058
  2. LANTUS [Concomitant]

REACTIONS (1)
  - UNEVALUABLE EVENT [None]
